FAERS Safety Report 5190392-0 (Version None)
Quarter: 2006Q4

REPORT INFORMATION
  Report Type: 
  Country: None (occurrence: None)
  Receive Date: 20061222
  Receipt Date: 20061213
  Transmission Date: 20070319
  Serious: Yes (Death, Life-Threatening, Hospitalization, Other)
  Sender: FDA-Public Use
  Company Number: GB-JNJFOC-20061203877

PATIENT
  Sex: Male
  Weight: 87 kg

DRUGS (12)
  1. REMICADE [Suspect]
     Indication: MALIGNANT HISTIOCYTOSIS
     Route: 042
  2. METHOTREXATE [Concomitant]
     Route: 065
  3. PREDNISOLONE [Concomitant]
     Route: 065
  4. AMLODIPINE [Concomitant]
     Route: 065
  5. ATENOLOL [Concomitant]
     Route: 065
  6. BENDROFLUAZIDE [Concomitant]
     Route: 065
  7. CALCICHEW [Concomitant]
     Route: 065
  8. FOLIC ACID [Concomitant]
     Route: 065
  9. FOSAMAX [Concomitant]
     Route: 065
  10. LISINOPRIL [Concomitant]
     Route: 065
  11. DEXAMETHASONE [Concomitant]
     Route: 065
  12. LANSOPRAZOLE [Concomitant]
     Route: 065

REACTIONS (1)
  - LISTERIA SEPSIS [None]
